FAERS Safety Report 23618432 (Version 1)
Quarter: 2024Q1

REPORT INFORMATION
  Report Type: Spontaneous
  Country: FR (occurrence: FR)
  Receive Date: 20240311
  Receipt Date: 20240311
  Transmission Date: 20240409
  Serious: Yes (Other)
  Sender: FDA-Public Use
  Company Number: None

PATIENT
  Age: 67 Year
  Sex: Female
  Weight: 73 kg

DRUGS (5)
  1. PANTOPRAZOLE [Suspect]
     Active Substance: PANTOPRAZOLE
     Indication: Barrett^s oesophagus
     Route: 048
     Dates: start: 20230606
  2. TAHOR [Concomitant]
     Active Substance: ATORVASTATIN CALCIUM
     Indication: Dyslipidaemia
     Dosage: COMPRIM? PELLICUL?
     Route: 048
     Dates: start: 202302, end: 20231003
  3. TICAGRELOR [Suspect]
     Active Substance: TICAGRELOR
     Indication: Myocardial infarction
     Dosage: COMPRIM? ORODISPERSIBLE
     Route: 048
     Dates: start: 20230606
  4. ASPIRIN DL-LYSINE [Suspect]
     Active Substance: ASPIRIN DL-LYSINE
     Indication: Myocardial infarction
     Dosage: ASPEGIC NOURRISSONS POUDRE POUR SOLUTION BUVABLE EN SACHET-DOSE
     Route: 048
     Dates: start: 20230606
  5. NEBIVOLOL [Suspect]
     Active Substance: NEBIVOLOL
     Indication: Myocardial infarction
     Dosage: CHLORHYDRATE DE NEBIVOLOL
     Route: 048
     Dates: start: 20230606

REACTIONS (1)
  - Cholestatic liver injury [Not Recovered/Not Resolved]

NARRATIVE: CASE EVENT DATE: 20230828
